FAERS Safety Report 23618664 (Version 1)
Quarter: 2024Q1

REPORT INFORMATION
  Report Type: Spontaneous
  Country: HR (occurrence: HR)
  Receive Date: 20240311
  Receipt Date: 20240311
  Transmission Date: 20240410
  Serious: Yes (Hospitalization, Other)
  Sender: FDA-Public Use
  Company Number: None

PATIENT
  Age: 16 Year
  Sex: Female
  Weight: 50 kg

DRUGS (1)
  1. TOPAMAX [Suspect]
     Active Substance: TOPIRAMATE
     Indication: Product used for unknown indication
     Dosage: COATED TABLETS, FILM
     Route: 048
     Dates: start: 20231207, end: 20231207

REACTIONS (6)
  - Urinary retention [Unknown]
  - Overdose [Unknown]
  - Headache [Unknown]
  - Nausea [Unknown]
  - Cyanosis [Unknown]
  - Asthenia [Unknown]

NARRATIVE: CASE EVENT DATE: 20231207
